FAERS Safety Report 11906750 (Version 1)
Quarter: 2016Q1

REPORT INFORMATION
  Report Type: Other
  Country: US (occurrence: US)
  Receive Date: 20160111
  Receipt Date: 20160111
  Transmission Date: 20160526
  Serious: No
  Sender: FDA-Public Use
  Company Number: US-MYLANLABS-2015M1035453

PATIENT

DRUGS (1)
  1. ESTRADIOL TRANSDERMAL SYSTEM [Suspect]
     Active Substance: ESTRADIOL
     Indication: HORMONE REPLACEMENT THERAPY
     Dosage: 0.1 MG, QD, 1 PATCH TWICE WEEKLY
     Route: 062
     Dates: start: 201502, end: 201509

REACTIONS (6)
  - Night sweats [Recovered/Resolved]
  - Mood swings [Recovered/Resolved]
  - Drug ineffective [Recovered/Resolved]
  - Feeling hot [Recovered/Resolved]
  - Insomnia [Recovered/Resolved]
  - Irritability [Recovered/Resolved]

NARRATIVE: CASE EVENT DATE: 201502
